FAERS Safety Report 5857692-X (Version None)
Quarter: 2008Q3

REPORT INFORMATION
  Report Type: 
  Country: None (occurrence: None)
  Receive Date: 20080826
  Receipt Date: 20080422
  Transmission Date: 20090109
  Serious: No
  Sender: FDA-Public Use
  Company Number: US-BAYER-200820479NA

PATIENT
  Age: 39 Year
  Sex: Female
  Weight: 54 kg

DRUGS (2)
  1. YASMIN [Suspect]
     Indication: MENSTRUATION IRREGULAR
     Route: 048
     Dates: start: 20080409, end: 20080414
  2. UNTHROID NOS [Concomitant]
     Indication: THYROID DISORDER

REACTIONS (2)
  - DYSGEUSIA [None]
  - NO ADVERSE EVENT [None]
